FAERS Safety Report 19258373 (Version 1)
Quarter: 2021Q2

REPORT INFORMATION
  Report Type: Spontaneous
  Country: CA (occurrence: CA)
  Receive Date: 20210514
  Receipt Date: 20210514
  Transmission Date: 20210717
  Serious: Yes (Other)
  Sender: FDA-Public Use
  Company Number: CA-ACCORD-224891

PATIENT
  Sex: Female

DRUGS (6)
  1. ERGOCALCIFEROL. [Concomitant]
     Active Substance: ERGOCALCIFEROL
     Route: 065
  2. TURMERIC SUPPLEMENT [Concomitant]
     Route: 065
  3. ANASTROZOLE. [Suspect]
     Active Substance: ANASTROZOLE
     Indication: PRODUCT USED FOR UNKNOWN INDICATION
     Route: 048
  4. GARLIC SUPPLEMENT [Concomitant]
     Route: 065
  5. LETROZOLE. [Concomitant]
     Active Substance: LETROZOLE
     Route: 065
  6. IBRANCE [Concomitant]
     Active Substance: PALBOCICLIB
     Route: 065

REACTIONS (1)
  - Disease progression [Unknown]
